FAERS Safety Report 23039502 (Version 1)
Quarter: 2023Q4

REPORT INFORMATION
  Report Type: Spontaneous
  Country: GB (occurrence: GB)
  Receive Date: 20231006
  Receipt Date: 20231006
  Transmission Date: 20240110
  Serious: Yes (Hospitalization, Other)
  Sender: FDA-Public Use
  Company Number: GB-MHRA-MED-202309261041121510-LJFRS

PATIENT
  Sex: Male

DRUGS (3)
  1. PAXLOVID [Suspect]
     Active Substance: NIRMATRELVIR\RITONAVIR
     Indication: COVID-19 treatment
  2. IVABRADINE [Concomitant]
     Active Substance: IVABRADINE
  3. RANOLAZINE [Concomitant]
     Active Substance: RANOLAZINE

REACTIONS (1)
  - Bradycardia [Recovered/Resolved]
